FAERS Safety Report 8411787 (Version 9)
Quarter: 2017Q1

REPORT INFORMATION
  Report Type: Spontaneous
  Country: US (occurrence: US)
  Receive Date: 20120217
  Receipt Date: 20170324
  Transmission Date: 20170429
  Serious: Yes (Hospitalization, Other)
  Sender: FDA-Public Use
  Company Number: US-009507513-1202USA02443

PATIENT
  Sex: Female
  Weight: 84.81 kg

DRUGS (6)
  1. FOSAMAX [Suspect]
     Active Substance: ALENDRONATE SODIUM
     Indication: OSTEOPOROSIS
     Dosage: 70 MG, QW
     Route: 048
  2. FOSAMAX [Suspect]
     Active Substance: ALENDRONATE SODIUM
     Indication: OSTEOPOROSIS
     Dosage: 70 MG, UNK
     Route: 048
     Dates: start: 20030502, end: 20080915
  3. FOSAMAX [Suspect]
     Active Substance: ALENDRONATE SODIUM
     Indication: OSTEOPENIA
  4. CELEBREX [Concomitant]
     Active Substance: CELECOXIB
     Indication: OSTEOARTHRITIS
     Dosage: 200 MG, QD
     Dates: start: 20030421
  5. NAPROSYN [Concomitant]
     Active Substance: NAPROXEN
     Indication: OSTEOARTHRITIS
     Dosage: 500 MG, BID
     Dates: start: 20030502
  6. FOSAMAX [Suspect]
     Active Substance: ALENDRONATE SODIUM
     Indication: OSTEOPENIA

REACTIONS (53)
  - Pubis fracture [Unknown]
  - Intervertebral disc protrusion [Unknown]
  - Wheezing [Unknown]
  - Erosive oesophagitis [Unknown]
  - Arthralgia [Unknown]
  - Oedema peripheral [Unknown]
  - Pelvic fracture [Unknown]
  - Acute kidney injury [Unknown]
  - Metastasis [Unknown]
  - Haemorrhoids [Unknown]
  - Pancreatic cyst [Unknown]
  - Spondylolisthesis [Unknown]
  - Meniscus injury [Unknown]
  - Intervertebral disc degeneration [Unknown]
  - Constipation [Not Recovered/Not Resolved]
  - Bundle branch block right [Unknown]
  - Varicose vein [Unknown]
  - Exostosis [Unknown]
  - Synovial cyst [Unknown]
  - Spondylolysis [Unknown]
  - Dementia [Unknown]
  - Rosacea [Unknown]
  - Femur fracture [Unknown]
  - Fractured ischium [Unknown]
  - Hiatus hernia [Unknown]
  - Helicobacter test positive [Unknown]
  - Diverticulum [Unknown]
  - Hypertension [Unknown]
  - Presyncope [Unknown]
  - Biliary dilatation [Unknown]
  - Hypothyroidism [Unknown]
  - Chronic gastritis [Not Recovered/Not Resolved]
  - Erythema [Unknown]
  - Low turnover osteopathy [Unknown]
  - Bursitis [Unknown]
  - Spinal osteoarthritis [Unknown]
  - Colon adenoma [Unknown]
  - Kyphosis [Unknown]
  - Upper respiratory tract infection [Unknown]
  - Arthropathy [Unknown]
  - Ligament injury [Unknown]
  - Gastrooesophageal reflux disease [Unknown]
  - Dehydration [Unknown]
  - Bile duct stone [Unknown]
  - Bone contusion [Unknown]
  - Oedema peripheral [Unknown]
  - Fracture nonunion [Unknown]
  - Fall [Unknown]
  - Fall [Unknown]
  - Chondromalacia [Unknown]
  - Joint effusion [Unknown]
  - Anxiety [Unknown]
  - Constipation [Unknown]

NARRATIVE: CASE EVENT DATE: 20030618
